FAERS Safety Report 19105190 (Version 2)
Quarter: 2021Q3

REPORT INFORMATION
  Report Type: Spontaneous
  Country: JP (occurrence: JP)
  Receive Date: 20210407
  Receipt Date: 20210709
  Transmission Date: 20211014
  Serious: Yes (Hospitalization, Other)
  Sender: FDA-Public Use
  Company Number: JP-DSJP-DSJ-2021-110241

PATIENT
  Age: 40 Year
  Sex: Female

DRUGS (4)
  1. EFIENT [Suspect]
     Active Substance: PRASUGREL HYDROCHLORIDE
     Indication: ACUTE CORONARY SYNDROME
     Dosage: 20 MG, QD
     Route: 065
  2. NITRATE [Concomitant]
     Active Substance: UNSPECIFIED INGREDIENT
     Dosage: UNK
     Route: 065
  3. OVISOT FOR INJECTION 0.1G [Suspect]
     Active Substance: ACETYLCHOLINE CHLORIDE
     Indication: DRUG PROVOCATION TEST
     Dosage: 20MG
     Route: 022
  4. ASPIRIN                            /00002701/ [Concomitant]
     Active Substance: ASPIRIN
     Indication: ACUTE CORONARY SYNDROME
     Dosage: 200MG
     Route: 065

REACTIONS (2)
  - Haematoma [Recovered/Resolved]
  - Shock [Recovered/Resolved]
